FAERS Safety Report 24994996 (Version 2)
Quarter: 2025Q1

REPORT INFORMATION
  Report Type: Report from Study
  Country: US (occurrence: US)
  Receive Date: 20250221
  Receipt Date: 20250314
  Transmission Date: 20250409
  Serious: Yes (Other)
  Sender: AMGEN
  Company Number: US-AMGEN-USASL2025031700

PATIENT
  Age: 44 Year
  Sex: Female
  Weight: 56.8 kg

DRUGS (23)
  1. CARFILZOMIB [Suspect]
     Active Substance: CARFILZOMIB
     Indication: Plasma cell myeloma
     Dosage: UNK UNK, QWK (60 MG LYOPHILIZED VIAL )
     Route: 065
     Dates: start: 20250113
  2. DEXAMETHASONE [Concomitant]
     Active Substance: DEXAMETHASONE
     Indication: Plasma cell myeloma
     Dosage: UNK UNK, QWK, D1, CYCLE 1
  3. CYTOXAN [Concomitant]
     Active Substance: CYCLOPHOSPHAMIDE
     Indication: Plasma cell myeloma
     Dosage: UNK UNK, QWK, D1, CYCLE 1
     Dates: start: 20241216
  4. BORTEZOMIB [Concomitant]
     Active Substance: BORTEZOMIB
     Indication: Plasma cell myeloma
  5. LENALIDOMIDE [Concomitant]
     Active Substance: LENALIDOMIDE
     Indication: Plasma cell myeloma
  6. TECLISTAMAB [Concomitant]
     Active Substance: TECLISTAMAB
     Indication: Plasma cell myeloma
  7. ASCORBIC ACID [Concomitant]
     Active Substance: ASCORBIC ACID
     Indication: Plasma cell myeloma
  8. MELPHALAN [Concomitant]
     Active Substance: MELPHALAN
     Indication: Plasma cell myeloma
  9. ZOVIRAX [Concomitant]
     Active Substance: ACYCLOVIR
     Indication: Prophylaxis
     Dosage: 2 DOSAGE FORM, BID
     Route: 048
  10. FLUCONAZOLE [Concomitant]
     Active Substance: FLUCONAZOLE
     Indication: Prophylaxis
  11. LOVENOX [Concomitant]
     Active Substance: ENOXAPARIN SODIUM
     Indication: Prophylaxis
  12. PROTONIX [Concomitant]
     Active Substance: PANTOPRAZOLE SODIUM
     Indication: Prophylaxis
  13. DAPSONE [Concomitant]
     Active Substance: DAPSONE
     Indication: Prophylaxis
  14. DOXYCYCLINE [Concomitant]
     Active Substance: DOXYCYCLINE
  15. ZOMETA [Concomitant]
     Active Substance: ZOLEDRONIC ACID
     Route: 065
     Dates: start: 20250113
  16. ALLEGRA [Concomitant]
     Active Substance: FEXOFENADINE HYDROCHLORIDE
  17. CLARITIN [Concomitant]
     Active Substance: LORATADINE
  18. ACETAMINOPHEN [Concomitant]
     Active Substance: ACETAMINOPHEN
     Route: 048
  19. ALBUTEROL [Concomitant]
     Active Substance: ALBUTEROL
     Dosage: 90 MICROGRAM, Q6H/ INHALE TWO PUFFS INTO THE LUNGS EVERY 6 (SIX) HOURS AS NEEDED FOR WHEEZING HFA
  20. ASPIRIN [Concomitant]
     Active Substance: ASPIRIN
     Dosage: 81 MILLIGRAM, QD
     Route: 048
  21. LIORESAL [Concomitant]
     Active Substance: BACLOFEN
     Indication: Hiccups
     Dosage: 5 MILLIGRAM, TID /AKE ONE-HALF TABLET (5 MG) BY MOUTH 3 (THREE) TIMES A DAY AS NEEDED (HICCUPS)
  22. ROXICODONE [Concomitant]
     Active Substance: OXYCODONE HYDROCHLORIDE
     Dosage: 5 MILLIGRAM, Q8H/ PRN
     Route: 048
  23. VOLTAREN [Concomitant]
     Active Substance: DICLOFENAC SODIUM
     Dosage: 2 GRAM, QID
     Route: 061

REACTIONS (20)
  - Pancytopenia [Unknown]
  - Neuropathy peripheral [Unknown]
  - Haemoglobin decreased [Unknown]
  - Hypotension [Unknown]
  - Monocyte count increased [Unknown]
  - Headache [Unknown]
  - Blood sodium decreased [Unknown]
  - Carbon dioxide decreased [Unknown]
  - Mycoplasma infection [Unknown]
  - Rhinovirus infection [Unknown]
  - Back pain [Recovering/Resolving]
  - Musculoskeletal chest pain [Recovering/Resolving]
  - Groin pain [Recovering/Resolving]
  - Off label use [Unknown]
  - Nausea [Recovering/Resolving]
  - Ear discomfort [Unknown]
  - Stress [Unknown]
  - Mean cell volume increased [Unknown]
  - Mean cell haemoglobin increased [Unknown]
  - Blood phosphorus increased [Unknown]

NARRATIVE: CASE EVENT DATE: 20240306
